FAERS Safety Report 6517763-1 (Version None)
Quarter: 2009Q4

REPORT INFORMATION
  Report Type: 
  Country: None (occurrence: None)
  Receive Date: 20091224
  Receipt Date: 20091216
  Transmission Date: 20100525
  Serious: Yes (Other)
  Sender: FDA-Public Use
  Company Number: US-NOVOPROD-302214

PATIENT
  Sex: Male
  Weight: 144.9 kg

DRUGS (6)
  1. NORDITROPIN [Suspect]
     Indication: GROWTH HORMONE DEFICIENCY
     Dosage: UNK
     Route: 058
     Dates: start: 20021101, end: 20091113
  2. SYNTHROID [Concomitant]
     Indication: HYPOPITUITARISM
     Dosage: 200 MG, QD
     Route: 048
  3. CORTEF                             /00028601/ [Concomitant]
     Indication: HYPOPITUITARISM
     Dosage: 15 MG AM, 10 MG PM
     Route: 048
  4. DESMOPRESSIN [Concomitant]
     Indication: HYPOPITUITARISM
     Dosage: 0.2 MG, QD
     Route: 048
  5. ANDROGEL [Concomitant]
     Indication: HYPOPITUITARISM
     Dosage: 7.5 MG, QD
     Route: 061
  6. METFORMIN HCL [Concomitant]
     Indication: HYPERINSULINAEMIA
     Dosage: 1000 MG, BID
     Route: 048

REACTIONS (1)
  - CRANIOPHARYNGIOMA [None]
